FAERS Safety Report 17793627 (Version 1)
Quarter: 2020Q2

REPORT INFORMATION
  Report Type: Spontaneous
  Country: US (occurrence: US)
  Receive Date: 20200515
  Receipt Date: 20200515
  Transmission Date: 20200714
  Serious: Yes (Hospitalization, Other)
  Sender: FDA-Public Use
  Company Number: US-PURDUE PHARMA-USA-2020-0152696

PATIENT
  Age: 66 Year
  Sex: Female

DRUGS (1)
  1. OXYCONTIN [Suspect]
     Active Substance: OXYCODONE HYDROCHLORIDE
     Indication: PRODUCT USED FOR UNKNOWN INDICATION
     Dosage: UNK
     Route: 048
     Dates: start: 1991

REACTIONS (6)
  - Transfusion [Unknown]
  - Near death experience [Unknown]
  - Intestinal operation [Unknown]
  - Intestinal obstruction [Unknown]
  - Spinal cord operation [Unknown]
  - Spinal disorder [Unknown]

NARRATIVE: CASE EVENT DATE: 2005
